FAERS Safety Report 13835135 (Version 1)
Quarter: 2017Q3

REPORT INFORMATION
  Report Type: Spontaneous
  Country: US (occurrence: US)
  Receive Date: 20170804
  Receipt Date: 20170804
  Transmission Date: 20171127
  Serious: Yes (Hospitalization, Other)
  Sender: FDA-Public Use
  Company Number: US-AKRIMAX-TIR-2017-0706

PATIENT
  Age: 70 Year
  Sex: Female

DRUGS (13)
  1. LITHIUM. [Suspect]
     Active Substance: LITHIUM
     Indication: DELUSION
     Dosage: 300MG TWICE DAILY
     Dates: start: 20161108, end: 20161111
  2. DIVALPROEX SODIUM. [Concomitant]
     Active Substance: DIVALPROEX SODIUM
     Indication: PRODUCT USED FOR UNKNOWN INDICATION
     Dosage: 500MG TWICE DAILY
  3. RISPERIDONE. [Concomitant]
     Active Substance: RISPERIDONE
     Indication: PRODUCT USED FOR UNKNOWN INDICATION
     Dosage: 3.5MG TWICE DAILY
     Dates: end: 20161108
  4. AMANTADINE HYDROCHLORIDE. [Concomitant]
     Active Substance: AMANTADINE HYDROCHLORIDE
     Indication: PRODUCT USED FOR UNKNOWN INDICATION
     Dosage: 100MG TWICE DAILY
  5. RISPERIDONE. [Concomitant]
     Active Substance: RISPERIDONE
     Dosage: 3MG TWICE DAILY
     Dates: start: 20161108
  6. LITHIUM. [Suspect]
     Active Substance: LITHIUM
     Dosage: 300MG TWICE DAILY AND 450MG AT BEDTIME
     Dates: start: 20161115, end: 20161122
  7. LEVOTHYROXINE. [Suspect]
     Active Substance: LEVOTHYROXINE
     Indication: PRODUCT USED FOR UNKNOWN INDICATION
     Dosage: 25MCG DAILY
  8. GABAPENTIN. [Concomitant]
     Active Substance: GABAPENTIN
     Indication: PRODUCT USED FOR UNKNOWN INDICATION
     Dosage: 300MG THRICE DAILY
  9. LITHIUM. [Suspect]
     Active Substance: LITHIUM
     Dosage: 300MG THRICE DAILY
     Dates: start: 20161111, end: 20161115
  10. VALPROIC ACID. [Concomitant]
     Active Substance: VALPROIC ACID
     Indication: PRODUCT USED FOR UNKNOWN INDICATION
     Dosage: 250MG AT BEDTIME
  11. LORAZEPAM. [Concomitant]
     Active Substance: LORAZEPAM
     Indication: PRODUCT USED FOR UNKNOWN INDICATION
     Dosage: 1MG TWICE DAILY
  12. AMLODIPINE BESYLATE. [Concomitant]
     Active Substance: AMLODIPINE BESYLATE
     Indication: PRODUCT USED FOR UNKNOWN INDICATION
     Dosage: 5MG DAILY
  13. ASPIRIN. [Concomitant]
     Active Substance: ASPIRIN
     Indication: PRODUCT USED FOR UNKNOWN INDICATION
     Dosage: 81MG DAILY

REACTIONS (11)
  - Grandiosity [Unknown]
  - Hypernatraemia [Unknown]
  - Abnormal behaviour [Unknown]
  - Blood sodium increased [Unknown]
  - Speech sound disorder [Unknown]
  - Lethargy [Unknown]
  - Agitation [Unknown]
  - Delusion [Unknown]
  - Aphasia [Recovered/Resolved]
  - Toxicity to various agents [Unknown]
  - Tremor [Unknown]

NARRATIVE: CASE EVENT DATE: 20161107
